FAERS Safety Report 10498130 (Version 1)
Quarter: 2014Q4

REPORT INFORMATION
  Report Type: Spontaneous
  Country: FI (occurrence: FI)
  Receive Date: 20141006
  Receipt Date: 20141006
  Transmission Date: 20150528
  Serious: Yes (Disabling)
  Sender: FDA-Public Use
  Company Number: FI-TEVA-511657ISR

PATIENT
  Age: 45 Year
  Sex: Male

DRUGS (2)
  1. LOSATRIX COMP 100MG/12,5 MG [Suspect]
     Active Substance: HYDROCHLOROTHIAZIDE\LOSARTAN
     Route: 048
     Dates: start: 20090928, end: 20121017
  2. LOSATRIX COMP 100 MG / 25 MG [Suspect]
     Active Substance: HYDROCHLOROTHIAZIDE\LOSARTAN
     Route: 048
     Dates: start: 20121017, end: 20140623

REACTIONS (9)
  - Musculoskeletal stiffness [Unknown]
  - Nausea [Unknown]
  - Palpitations [Unknown]
  - Inflammation [Unknown]
  - Pain in extremity [Unknown]
  - Arthritis [None]
  - Joint stiffness [Unknown]
  - Vertigo [Unknown]
  - Fatigue [Unknown]

NARRATIVE: CASE EVENT DATE: 20090928
